FAERS Safety Report 4818608-8 (Version None)
Quarter: 2005Q4

REPORT INFORMATION
  Report Type: 
  Country: None (occurrence: None)
  Receive Date: 20051031
  Receipt Date: 20051026
  Transmission Date: 20060501
  Serious: Yes (Hospitalization)
  Sender: FDA-Public Use
  Company Number: 200510988BVD

PATIENT

DRUGS (1)
  1. CIPROFLOXACIN [Suspect]
     Dosage: INTRAVENOUS
     Route: 042

REACTIONS (1)
  - FAT NECROSIS [None]
